FAERS Safety Report 12126438 (Version 2)
Quarter: 2016Q1

REPORT INFORMATION
  Report Type: Spontaneous
  Country: NL (occurrence: NL)
  Receive Date: 20160229
  Receipt Date: 20160307
  Transmission Date: 20160526
  Serious: Yes (Hospitalization)
  Sender: FDA-Public Use
  Company Number: PHHY2016NL023343

PATIENT
  Age: 59 Year
  Sex: Male
  Weight: 84 kg

DRUGS (8)
  1. METOPROLIN [Concomitant]
     Indication: PRODUCT USED FOR UNKNOWN INDICATION
     Dosage: 1DD 25MG
     Route: 048
     Dates: start: 20150402
  2. FOLIUMZUUR [Concomitant]
     Active Substance: FOLIC ACID
     Indication: PRODUCT USED FOR UNKNOWN INDICATION
     Dosage: 1 X PER WEEK OP WOENSDAG 1 ST.
     Route: 048
     Dates: start: 20130516
  3. VITAMIN D3 [Concomitant]
     Active Substance: CHOLECALCIFEROL
     Indication: PRODUCT USED FOR UNKNOWN INDICATION
     Dosage: 1 X PER 2 MAANDEN 2ML
     Route: 048
     Dates: start: 20130706
  4. METHOTREXATE (METHOTREXATE SODIUM) [Suspect]
     Active Substance: METHOTREXATE SODIUM
     Indication: RHEUMATOID ARTHRITIS
     Dosage: 1 KEER PER WEEK 1 STUK(S)
     Route: 058
     Dates: start: 2012, end: 20160209
  5. ASPIRIN. [Concomitant]
     Active Substance: ASPIRIN
     Indication: PRODUCT USED FOR UNKNOWN INDICATION
     Dosage: 1DD1
     Route: 048
     Dates: start: 20150205
  6. TRAMADOL. [Concomitant]
     Active Substance: TRAMADOL
     Indication: PRODUCT USED FOR UNKNOWN INDICATION
     Dosage: 3DD1
     Route: 048
     Dates: start: 20130517
  7. DIPIPERON [Concomitant]
     Active Substance: PIPAMPERONE
     Indication: PRODUCT USED FOR UNKNOWN INDICATION
     Dosage: 1DD20MG
     Route: 048
     Dates: start: 20150415
  8. PARACETAMOL [Concomitant]
     Active Substance: ACETAMINOPHEN
     Indication: PRODUCT USED FOR UNKNOWN INDICATION
     Dosage: ZONODIG MAX 3DD2
     Route: 048

REACTIONS (4)
  - Atrial fibrillation [Recovered/Resolved]
  - Pneumonia [Recovered/Resolved]
  - Chills [Recovered/Resolved]
  - Pyrexia [Recovered/Resolved]

NARRATIVE: CASE EVENT DATE: 20160105
